FAERS Safety Report 8297052-8 (Version None)
Quarter: 2012Q2

REPORT INFORMATION
  Report Type: 
  Country: None (occurrence: None)
  Receive Date: 20120417
  Receipt Date: 20120417
  Transmission Date: 20120825
  Serious: Yes (Other)
  Sender: FDA-Public Use
  Company Number: None

PATIENT
  Sex: Female

DRUGS (1)
  1. FORTEO [Suspect]
     Indication: ILL-DEFINED DISORDER
     Dosage: 20 MCG DAILY SQ
     Route: 058
     Dates: start: 20120403, end: 20120410

REACTIONS (3)
  - DRUG HYPERSENSITIVITY [None]
  - GAIT DISTURBANCE [None]
  - MYALGIA [None]
